FAERS Safety Report 6400791-4 (Version None)
Quarter: 2009Q4

REPORT INFORMATION
  Report Type: 
  Country: None (occurrence: None)
  Receive Date: 20091008
  Receipt Date: 20090924
  Transmission Date: 20100525
  Serious: Yes (Other)
  Sender: FDA-Public Use
  Company Number: 8050853

PATIENT
  Age: 62 Year
  Sex: Male
  Weight: 79 kg

DRUGS (9)
  1. KEPPRA [Suspect]
     Indication: GRAND MAL CONVULSION
  2. KEPPRA [Suspect]
     Indication: GRAND MAL CONVULSION
     Dosage: 750 MG 2/D PO
     Route: 048
     Dates: start: 20080911, end: 20080912
  3. KEPPRA [Suspect]
     Indication: GRAND MAL CONVULSION
     Dosage: 250 MG 2/D PO
     Route: 048
     Dates: start: 20080929
  4. VALPROATE SODIUM [Concomitant]
  5. RAMIPRIL [Concomitant]
  6. ASPIRIN [Concomitant]
  7. FUROSEMIDE [Concomitant]
  8. SIMVASTATIN [Concomitant]
  9. FERROUS SULFATE TAB [Concomitant]

REACTIONS (7)
  - AFFECT LABILITY [None]
  - AGGRESSION [None]
  - DYSARTHRIA [None]
  - DYSKINESIA [None]
  - DYSPHORIA [None]
  - HEMIPLEGIA [None]
  - PSYCHOTIC DISORDER [None]
